FAERS Safety Report 6077236-X (Version None)
Quarter: 2009Q1

REPORT INFORMATION
  Report Type: 
  Country: None (occurrence: None)
  Receive Date: 20090213
  Receipt Date: 20090206
  Transmission Date: 20090719
  Serious: Yes (Hospitalization, Other)
  Sender: FDA-Public Use
  Company Number: A0718702A

PATIENT
  Age: 84 Year
  Sex: Male
  Weight: 77.3 kg

DRUGS (5)
  1. AVANDIA [Suspect]
     Dates: start: 20030409, end: 20060801
  2. AVANDAMET [Suspect]
     Dates: start: 20030409, end: 20060801
  3. AVANDARYL [Suspect]
     Dates: start: 20030409, end: 20060801
  4. HUMALOG [Concomitant]
     Dates: start: 20060601, end: 20060603
  5. LANTUS [Concomitant]
     Dates: start: 20060101

REACTIONS (4)
  - ACTIVITIES OF DAILY LIVING IMPAIRED [None]
  - BALANCE DISORDER [None]
  - CEREBROVASCULAR ACCIDENT [None]
  - MYOCARDIAL INFARCTION [None]
